FAERS Safety Report 5660604-5 (Version None)
Quarter: 2008Q1

REPORT INFORMATION
  Report Type: 
  Country: None (occurrence: None)
  Receive Date: 20080311
  Receipt Date: 20080305
  Transmission Date: 20080703
  Serious: Yes (Other)
  Sender: FDA-Public Use
  Company Number: GB-BAYER-200814450GPV

PATIENT
  Age: 29 Year
  Sex: Female

DRUGS (6)
  1. NIFEDIPINE [Suspect]
     Indication: PREMATURE LABOUR
     Route: 065
  2. CORTICOSTEROIDS [Suspect]
     Indication: PREMATURE LABOUR
     Route: 065
  3. CYCLIZINE [Suspect]
     Indication: VOMITING
     Route: 065
  4. INTRAVENOUS FLUIDS [Suspect]
     Indication: VOMITING
     Route: 065
  5. MIFEPRISTONE [Suspect]
     Indication: INDUCED LABOUR
     Route: 065
  6. MISOPROSTOL [Suspect]
     Indication: INDUCED LABOUR
     Route: 065

REACTIONS (1)
  - INTRA-UTERINE DEATH [None]
